FAERS Safety Report 13255698 (Version 1)
Quarter: 2017Q1

REPORT INFORMATION
  Report Type: Spontaneous
  Country: US (occurrence: US)
  Receive Date: 20170221
  Receipt Date: 20170221
  Transmission Date: 20170428
  Serious: Yes (Other)
  Sender: FDA-Public Use
  Company Number: US-ABBVIE-17P-163-1877197-00

PATIENT
  Age: 40 Year
  Sex: Female

DRUGS (1)
  1. VICODIN [Suspect]
     Active Substance: ACETAMINOPHEN\HYDROCODONE BITARTRATE
     Indication: PAIN
     Route: 048
     Dates: start: 2013, end: 2013

REACTIONS (1)
  - Endometrial hyperplasia [Not Recovered/Not Resolved]

NARRATIVE: CASE EVENT DATE: 2016
